FAERS Safety Report 16641845 (Version 1)
Quarter: 2019Q3

REPORT INFORMATION
  Report Type: Spontaneous
  Country: US (occurrence: US)
  Receive Date: 20190726
  Receipt Date: 20190726
  Transmission Date: 20191004
  Serious: No
  Sender: FDA-Public Use
  Company Number: None

PATIENT
  Age: 35 Year
  Sex: Female
  Weight: 67.5 kg

DRUGS (5)
  1. BUPROPION SR TABLET 200 MG [Concomitant]
  2. VENLAFAXINE HCL ER CAPSULE 150 MG [Suspect]
     Active Substance: VENLAFAXINE HYDROCHLORIDE
     Indication: DEPRESSION
     Dosage: ?          QUANTITY:1 CAPSULE(S);?
     Route: 048
     Dates: start: 20190101
  3. OCELLA [Concomitant]
     Active Substance: DROSPIRENONE\ETHINYL ESTRADIOL
  4. TRAZODONE [Concomitant]
     Active Substance: TRAZODONE HYDROCHLORIDE
  5. WOMEN^S MULTI VITAMIN [Concomitant]

REACTIONS (8)
  - Product physical issue [None]
  - Product quality control issue [None]
  - Nausea [None]
  - Vertigo [None]
  - Withdrawal syndrome [None]
  - Diarrhoea [None]
  - Muscle tightness [None]
  - Product quality issue [None]

NARRATIVE: CASE EVENT DATE: 20190726
